FAERS Safety Report 8207849-8 (Version None)
Quarter: 2012Q1

REPORT INFORMATION
  Report Type: 
  Country: None (occurrence: None)
  Receive Date: 20120314
  Receipt Date: 20120304
  Transmission Date: 20120608
  Serious: Yes (Death)
  Sender: FDA-Public Use
  Company Number: DZ-NOVOPROD-346584

PATIENT
  Age: 26 Day
  Sex: Female

DRUGS (5)
  1. GENTAMICIN [Concomitant]
     Indication: NEONATAL INFECTION
     Dosage: 5 MG/KG
     Route: 042
     Dates: start: 20120124, end: 20120202
  2. PHENOBARBITAL TAB [Concomitant]
     Dosage: 20MG/KG PEROS:3MG/KG
     Route: 042
     Dates: start: 20120125, end: 20120209
  3. CEFOTAXIME [Concomitant]
     Indication: NEONATAL INFECTION
     Dosage: 150MG/KG
     Route: 042
     Dates: start: 20120124, end: 20120206
  4. NOVOSEVEN [Suspect]
     Indication: FACTOR VII DEFICIENCY
     Dosage: 30MCG/KG 4TIMES A DAY
     Route: 065
     Dates: start: 20120129, end: 20120202
  5. NOVOSEVEN [Suspect]
     Dosage: 30MCG/KG 8 TIMES A DAY
     Route: 065
     Dates: start: 20120209, end: 20120210

REACTIONS (1)
  - CARDIO-RESPIRATORY ARREST [None]
